FAERS Safety Report 10022856 (Version 3)
Quarter: 2014Q3

REPORT INFORMATION
  Report Type: Spontaneous
  Country: US (occurrence: US)
  Receive Date: 20140319
  Receipt Date: 20140905
  Transmission Date: 20150326
  Serious: No
  Sender: FDA-Public Use
  Company Number: US-PFIZER INC-2014078515

PATIENT
  Age: 63 Year
  Sex: Female
  Weight: 88.89 kg

DRUGS (19)
  1. BIOTIN [Concomitant]
     Active Substance: BIOTIN
     Dosage: 500 UG, UNK
  2. VITAMIN B COMPLEX [Concomitant]
     Active Substance: CYANOCOBALAMIN\DEXPANTHENOL\NIACINAMIDE\PYRIDOXINE HYDROCHLORIDE\RIBOFLAVIN 5^-PHOSPHATE SODIUM\THIAMINE HYDROCHLORIDE\VITAMIN B COMPLEX
     Dosage: UNK
  3. LYRICA [Suspect]
     Active Substance: PREGABALIN
     Indication: DIABETIC NEUROPATHY
     Dosage: 50 MG, 3X/DAY AS NEEDED
     Route: 048
     Dates: start: 2013
  4. GLIPIZIDE. [Concomitant]
     Active Substance: GLIPIZIDE
     Dosage: 10 MG, 2X/DAY
     Route: 048
  5. LEVOTHYROXINE [Concomitant]
     Active Substance: LEVOTHYROXINE
     Dosage: 88 UG, 1 IN THE MORNING
     Route: 048
  6. LYRICA [Suspect]
     Active Substance: PREGABALIN
     Dosage: 100 MG, 1X/DAY
     Route: 048
     Dates: start: 2013, end: 2013
  7. MILK THISTLE [Concomitant]
     Active Substance: MILK THISTLE
     Dosage: 200 MG CAPSULE 2 TABS, DAILY
     Route: 048
  8. VIVARIN [Concomitant]
     Active Substance: CAFFEINE
     Dosage: UNK
  9. LYRICA [Suspect]
     Active Substance: PREGABALIN
     Dosage: 100 MG, 2X/DAY
     Route: 048
     Dates: start: 2013, end: 2013
  10. BACTROBAN [Concomitant]
     Active Substance: MUPIROCIN\MUPIROCIN CALCIUM
     Dosage: 2 %, 2X/DAY
     Route: 061
  11. LISINOPRIL. [Concomitant]
     Active Substance: LISINOPRIL
     Dosage: 20 MG, 1 IN THE MORNING
     Route: 048
  12. PANTOPRAZOLE [Concomitant]
     Active Substance: PANTOPRAZOLE SODIUM
     Dosage: 40 MG, QHS
     Route: 048
  13. TRIAMCINOLONE ACETONIDE. [Concomitant]
     Active Substance: TRIAMCINOLONE ACETONIDE
     Dosage: 0.1 %, 2X/DAY
     Route: 061
  14. L GLUTATHION /00503401/ [Concomitant]
     Dosage: 100 MG, 1X/DAY
  15. LYRICA [Suspect]
     Active Substance: PREGABALIN
     Dosage: 100 MG, 3X/DAY
     Route: 048
     Dates: start: 2013
  16. METFORMIN [Concomitant]
     Active Substance: METFORMIN HYDROCHLORIDE
     Dosage: 1000 MG, 2X/DAY
     Route: 048
  17. BLUEBERRY. [Concomitant]
     Active Substance: BLUEBERRY
     Dosage: 500 MG, 1X/DAY
  18. TYLENOL PM [Concomitant]
     Active Substance: ACETAMINOPHEN\DIPHENHYDRAMINE
     Dosage: UNK
  19. IBUPROFEN. [Concomitant]
     Active Substance: IBUPROFEN
     Dosage: UNK

REACTIONS (13)
  - Arthralgia [Unknown]
  - Nervousness [Unknown]
  - Body mass index increased [Unknown]
  - Joint stiffness [Unknown]
  - Muscular weakness [Unknown]
  - Hypoaesthesia [Unknown]
  - Intentional product misuse [Unknown]
  - Blood cholesterol abnormal [Unknown]
  - Pain [Unknown]
  - Insomnia [Unknown]
  - Drug ineffective [Unknown]
  - Sensory disturbance [Unknown]
  - Fatigue [Unknown]

NARRATIVE: CASE EVENT DATE: 2013
